FAERS Safety Report 6225290-4 (Version None)
Quarter: 2009Q2

REPORT INFORMATION
  Report Type: 
  Country: None (occurrence: None)
  Receive Date: 20090612
  Receipt Date: 20090421
  Transmission Date: 20091009
  Serious: No
  Sender: FDA-Public Use
  Company Number: US-ABBOTT-09P-163-0568251-00

PATIENT
  Sex: Female
  Weight: 95.34 kg

DRUGS (3)
  1. HUMIRA [Suspect]
     Indication: PSORIATIC ARTHROPATHY
     Route: 058
     Dates: start: 20030701, end: 20080401
  2. HUMIRA [Suspect]
     Indication: PSORIASIS
     Route: 058
     Dates: start: 20080401
  3. NICORETTE [Concomitant]
     Indication: EX-TOBACCO USER
     Dosage: GUM
     Dates: start: 20070101

REACTIONS (4)
  - ARTHRALGIA [None]
  - INFLAMMATION [None]
  - PSORIASIS [None]
  - SKIN LESION [None]
